FAERS Safety Report 12428037 (Version 2)
Quarter: 2016Q2

REPORT INFORMATION
  Report Type: Spontaneous
  Country: HU (occurrence: HU)
  Receive Date: 20160602
  Receipt Date: 20160616
  Transmission Date: 20160815
  Serious: Yes (Other)
  Sender: FDA-Public Use
  Company Number: HU-BAYER-2016-107089

PATIENT
  Age: 73 Year
  Sex: Male
  Weight: 83 kg

DRUGS (11)
  1. XOFIGO [Suspect]
     Active Substance: RADIUM RA-223 DICHLORIDE
     Indication: METASTASES TO BONE
     Dosage: UNK
     Dates: start: 20160510
  2. ATORVA [Concomitant]
  3. AMLODIPINE [Concomitant]
     Active Substance: AMLODIPINE BESYLATE
  4. KARVOL [CHLOROBUTANOL,CHLOROTHYMOL,MENTHOL] [Concomitant]
  5. TAMSULOSIN HYDROCHLORIDE. [Concomitant]
     Active Substance: TAMSULOSIN HYDROCHLORIDE
  6. XOFIGO [Suspect]
     Active Substance: RADIUM RA-223 DICHLORIDE
     Indication: HORMONE-REFRACTORY PROSTATE CANCER
     Dosage: UNK
     Dates: start: 20160412
  7. ASPIRIN. [Concomitant]
     Active Substance: ASPIRIN
  8. DEGARELIX [Concomitant]
     Active Substance: DEGARELIX
     Dosage: UNK
     Dates: start: 20140214
  9. ZOLEDRONIC ACID [Concomitant]
     Active Substance: ZOLEDRONIC ACID
     Dosage: UNK
     Dates: start: 201404, end: 201605
  10. HYDROCHLOROTHIAZIDE W/RAMIPRIL [Concomitant]
     Active Substance: HYDROCHLOROTHIAZIDE\RAMIPRIL
  11. FENTANYL. [Concomitant]
     Active Substance: FENTANYL

REACTIONS (1)
  - Osteonecrosis of jaw [Not Recovered/Not Resolved]

NARRATIVE: CASE EVENT DATE: 20160525
